FAERS Safety Report 23110561 (Version 2)
Quarter: 2023Q4

REPORT INFORMATION
  Report Type: Spontaneous
  Country: FR (occurrence: FR)
  Receive Date: 20231026
  Receipt Date: 20231108
  Transmission Date: 20240110
  Serious: Yes (Other)
  Sender: FDA-Public Use
  Company Number: FR-SUN PHARMACEUTICAL INDUSTRIES LTD-2023RR-414325

PATIENT
  Age: 68 Year
  Sex: Male

DRUGS (1)
  1. PREGABALIN [Suspect]
     Active Substance: PREGABALIN
     Indication: Neuropathy peripheral
     Dosage: UNK
     Route: 065
     Dates: start: 202206

REACTIONS (4)
  - Dysarthria [Unknown]
  - Quadriparesis [Unknown]
  - Rhabdomyolysis [Unknown]
  - Electrocardiogram QT prolonged [Unknown]
